FAERS Safety Report 9377148 (Version 1)
Quarter: 2013Q2

REPORT INFORMATION
  Report Type: Spontaneous
  Country: US (occurrence: None)
  Receive Date: 20130628
  Receipt Date: 20130628
  Transmission Date: 20140414
  Serious: Yes (Disabling)
  Sender: FDA-Public Use
  Company Number: None

PATIENT
  Age: 48 Year
  Sex: Male

DRUGS (1)
  1. CIMZIA 200MG/ML CIMPLICITY [Suspect]
     Indication: CROHN^S DISEASE
     Dosage: 200MG/ML TWO PREFILLED SYRINGES EVERY FOUR WEEKS SUBCUTANEOUSLY
     Route: 058
     Dates: start: 20120216, end: 20130515

REACTIONS (1)
  - Lung neoplasm malignant [None]
